FAERS Safety Report 24265004 (Version 5)
Quarter: 2025Q4

REPORT INFORMATION
  Report Type: Spontaneous
  Country: US (occurrence: US)
  Receive Date: 20240829
  Receipt Date: 20251008
  Transmission Date: 20260117
  Serious: No
  Sender: INCYTE
  Company Number: US-INCYTE CORPORATION-2024IN008727

PATIENT
  Age: 66 Year

DRUGS (1)
  1. JAKAFI [Suspect]
     Active Substance: RUXOLITINIB
     Indication: Product used for unknown indication
     Dosage: 15 MILLIGRAM, BID

REACTIONS (15)
  - Hyperhidrosis [Unknown]
  - Abdominal discomfort [Recovered/Resolved]
  - Platelet count increased [Unknown]
  - Night sweats [Unknown]
  - Product dose omission in error [Unknown]
  - Malaise [Unknown]
  - Dizziness [Unknown]
  - Nausea [Unknown]
  - Skin infection [Unknown]
  - Skin discharge [Unknown]
  - Urinary tract infection [Recovered/Resolved]
  - Muscle spasms [Unknown]
  - Anaemia [Unknown]
  - Weight increased [Unknown]
  - Drug ineffective [Unknown]
